FAERS Safety Report 16346397 (Version 2)
Quarter: 2019Q2

REPORT INFORMATION
  Report Type: Spontaneous
  Country: US (occurrence: US)
  Receive Date: 20190523
  Receipt Date: 20190625
  Transmission Date: 20190711
  Serious: No
  Sender: FDA-Public Use
  Company Number: US-PFIZER INC-2019208681

PATIENT
  Age: 13 Year
  Sex: Male

DRUGS (2)
  1. GENOTROPIN [Suspect]
     Active Substance: SOMATROPIN
     Indication: CORTISOL ABNORMAL
     Dosage: 1.8 MG, DAILY (0.8 MG ALTERNATED WITH 1 MG)
     Dates: start: 20190411
  2. GENOTROPIN [Suspect]
     Active Substance: SOMATROPIN
     Indication: HORMONE LEVEL ABNORMAL
     Dosage: 1.8 MG, DAILY (0.8 MG ALTERNATED WITH 1 MG)

REACTIONS (2)
  - Wrong technique in device usage process [Unknown]
  - Injection site pain [Unknown]
